FAERS Safety Report 5477545-9 (Version None)
Quarter: 2007Q4

REPORT INFORMATION
  Report Type: 
  Country: None (occurrence: None)
  Receive Date: 20071002
  Receipt Date: 20070917
  Transmission Date: 20080405
  Serious: Yes (Other)
  Sender: FDA-Public Use
  Company Number: 2007R5-10178

PATIENT
  Sex: Female
  Weight: 60 kg

DRUGS (2)
  1. ISOTRETINOIN [Suspect]
     Indication: ACNE
     Dosage: 10 MG, TID, ORAL
     Route: 048
  2. MERCILON (ETHNYLESTRADIOL + DESOGESTREL) [Concomitant]

REACTIONS (6)
  - BLISTER [None]
  - BURNING SENSATION [None]
  - ERYTHEMA [None]
  - PRURITUS [None]
  - SCAR [None]
  - SKIN EXFOLIATION [None]
